FAERS Safety Report 18727645 (Version 1)
Quarter: 2021Q1

REPORT INFORMATION
  Report Type: Report from Study
  Country: BR (occurrence: BR)
  Receive Date: 20210111
  Receipt Date: 20210111
  Transmission Date: 20210419
  Serious: Yes (Death, Hospitalization, Other)
  Sender: FDA-Public Use
  Company Number: BR-B.I. PHARMACEUTICALS,INC./RIDGEFIELD-2021-BI-075367

PATIENT
  Age: 80 Year
  Sex: Male

DRUGS (2)
  1. SPIOLTO [Suspect]
     Active Substance: OLODATEROL HYDROCHLORIDE\TIOTROPIUM BROMIDE MONOHYDRATE
     Indication: EMPHYSEMA
     Dosage: 2,5 + 2,5 MCG
     Route: 050
     Dates: start: 202002
  2. SPIRIVA RESPIMAT [Suspect]
     Active Substance: TIOTROPIUM BROMIDE
     Indication: EMPHYSEMA
     Dosage: 2.5 MCG
     Route: 065
     Dates: end: 202002

REACTIONS (3)
  - Cerebrovascular accident [Fatal]
  - Intracranial aneurysm [Fatal]
  - Pulmonary function test abnormal [Unknown]

NARRATIVE: CASE EVENT DATE: 202002
